FAERS Safety Report 9346351 (Version 1)
Quarter: 2013Q2

REPORT INFORMATION
  Report Type: Spontaneous
  Country: FR (occurrence: FR)
  Receive Date: 20130613
  Receipt Date: 20130613
  Transmission Date: 20140414
  Serious: Yes (Hospitalization)
  Sender: FDA-Public Use
  Company Number: FR-PFIZER INC-2013163727

PATIENT
  Age: 65 Year
  Sex: Female

DRUGS (25)
  1. VFEND [Suspect]
     Dosage: 200 MG, 2X/DAY
     Route: 048
     Dates: start: 201210, end: 20130417
  2. TRIATEC [Suspect]
     Dosage: 1.25 MG, DAILY
     Route: 048
     Dates: start: 201210, end: 20130417
  3. BACTRIM [Suspect]
     Dosage: 3 DF, WEEKLY
     Route: 048
     Dates: start: 201210, end: 20130402
  4. CARDENSIEL [Concomitant]
     Dosage: 1.25 MG
     Route: 048
     Dates: start: 201210, end: 20130417
  5. SPRYCEL [Concomitant]
     Dosage: 100 MG, 1X/DAY
     Dates: start: 201209, end: 20130304
  6. SPRYCEL [Concomitant]
     Dosage: 70 MG, 1X/DAY
     Dates: end: 20130417
  7. FOLIC ACID [Concomitant]
     Dosage: 2 TABLET DAILY
     Dates: start: 201210
  8. ZELITREX [Concomitant]
     Dosage: 500 MG
     Dates: start: 201210, end: 20130310
  9. ZELITREX [Concomitant]
     Dosage: UNK
     Dates: end: 20130417
  10. LASILIX [Concomitant]
     Dosage: UNK
     Dates: start: 20130307
  11. DEPAKINE [Concomitant]
     Dosage: UNK
     Dates: start: 201302, end: 20130311
  12. BUSILVEX [Concomitant]
     Dosage: UNK
     Dates: start: 20130305, end: 20130309
  13. ALKERAN [Concomitant]
     Dosage: UNK
     Dates: start: 20130309
  14. GRANOCYTE [Concomitant]
     Dosage: UNK
     Dates: start: 20130317, end: 20130320
  15. VANCOMYCIN MYLAN [Concomitant]
     Dosage: UNK
     Dates: start: 20130304, end: 20130311
  16. NEXIUM [Concomitant]
     Dosage: UNK
     Dates: start: 20130304, end: 20130321
  17. PIPERACILLIN/TAZOBACTAM [Concomitant]
     Dosage: UNK
     Dates: start: 20130305, end: 20130322
  18. ZOVIRAX [Concomitant]
     Dosage: UNK
     Dates: start: 20130305, end: 20130321
  19. AMLODIPINE [Concomitant]
     Dosage: UNK
     Dates: start: 20130306, end: 20130311
  20. LOXEN [Concomitant]
     Dosage: UNK
     Dates: start: 20130311, end: 20130318
  21. ZOPHREN [Concomitant]
     Dosage: UNK
     Dates: start: 20130305, end: 20130310
  22. DEXAMETHASONE [Concomitant]
     Dosage: UNK
     Dates: start: 20130309
  23. HYDROCORTISONE [Concomitant]
     Dosage: UNK
     Dates: start: 20130306, end: 20130321
  24. HEPARIN [Concomitant]
     Dosage: UNK
     Dates: start: 20130304, end: 20130321
  25. METHYLPREDNISOLONE [Concomitant]
     Dosage: UNK
     Dates: start: 20130321, end: 20130322

REACTIONS (1)
  - Rash maculo-papular [Recovered/Resolved]
